FAERS Safety Report 4785706-7 (Version None)
Quarter: 2005Q4

REPORT INFORMATION
  Report Type: 
  Country: None (occurrence: None)
  Receive Date: 20051003
  Receipt Date: 20050919
  Transmission Date: 20060501
  Serious: Yes (Disabling)
  Sender: FDA-Public Use
  Company Number: NL-AMGEN-UK151081

PATIENT
  Sex: Male
  Weight: 75 kg

DRUGS (10)
  1. PALIFERMIN [Suspect]
     Indication: MUCOSAL INFLAMMATION
     Route: 042
     Dates: start: 20050705
  2. MELPHALAN [Concomitant]
     Route: 042
     Dates: start: 20050708, end: 20050710
  3. PRIMPERAN INJ [Concomitant]
     Route: 042
     Dates: start: 20050708, end: 20050720
  4. CIPROXIN [Concomitant]
     Route: 048
     Dates: start: 20050708, end: 20050723
  5. FUNGIZONE [Concomitant]
     Route: 048
     Dates: start: 20050708, end: 20050723
  6. NEXIUM [Concomitant]
     Route: 048
     Dates: start: 20050708, end: 20050723
  7. PENICILLIN [Concomitant]
     Route: 042
     Dates: start: 20050711, end: 20050723
  8. VALACYCLOVIR HCL [Concomitant]
     Route: 048
     Dates: start: 20050709, end: 20050723
  9. TEMAZEPAM [Concomitant]
     Route: 048
     Dates: start: 20050708, end: 20050723
  10. NEULASTA [Concomitant]
     Route: 058
     Dates: start: 20050705, end: 20050706

REACTIONS (7)
  - COUGH [None]
  - GLOSSODYNIA [None]
  - HYPERGAMMAGLOBULINAEMIA [None]
  - LYMPHOCYTOSIS [None]
  - TONGUE ULCERATION [None]
  - VOMITING [None]
  - WEIGHT DECREASED [None]
